FAERS Safety Report 16473817 (Version 3)
Quarter: 2019Q3

REPORT INFORMATION
  Report Type: Report from Study
  Country: DE (occurrence: DE)
  Receive Date: 20190625
  Receipt Date: 20190708
  Transmission Date: 20191004
  Serious: Yes (Hospitalization)
  Sender: FDA-Public Use
  Company Number: DE-B.I. PHARMACEUTICALS,INC./RIDGEFIELD-2019-BI-020778

PATIENT
  Age: 61 Year
  Sex: Female
  Weight: 42 kg

DRUGS (6)
  1. VARGATEF [Suspect]
     Active Substance: NINTEDANIB
     Route: 048
     Dates: start: 20190620
  2. FILGRASTIM [Concomitant]
     Active Substance: FILGRASTIM
     Indication: PROPHYLAXIS
     Route: 050
     Dates: start: 20190315
  3. DOCETAXEL. [Suspect]
     Active Substance: DOCETAXEL
     Dosage: LIQUID, DAILY DOSE: 75 MG/M2 BSA
     Route: 042
     Dates: start: 20190619
  4. VARGATEF [Suspect]
     Active Substance: NINTEDANIB
     Indication: LUNG ADENOCARCINOMA
     Route: 048
     Dates: start: 20190309, end: 20190520
  5. DOCETAXEL. [Suspect]
     Active Substance: DOCETAXEL
     Indication: LUNG ADENOCARCINOMA
     Dosage: LIQUID, DAILY DOSE: 75 MG/M2 BSA
     Route: 042
     Dates: start: 20190308, end: 20190510
  6. DOCETAXEL. [Suspect]
     Active Substance: DOCETAXEL
     Dosage: LIQUID, DAILY DOSE: 75 MG/M2 BSA
     Route: 042
     Dates: end: 20190531

REACTIONS (7)
  - Diarrhoea [Recovered/Resolved]
  - General physical health deterioration [Recovered/Resolved]
  - Nausea [Recovered/Resolved]
  - White blood cell count decreased [Recovered/Resolved]
  - White blood cell count decreased [Recovered/Resolved]
  - Leukocytosis [Recovered/Resolved]
  - Dyspnoea [Recovered/Resolved]

NARRATIVE: CASE EVENT DATE: 20190315
